FAERS Safety Report 12584679 (Version 1)
Quarter: 2016Q3

REPORT INFORMATION
  Report Type: Spontaneous
  Country: US (occurrence: US)
  Receive Date: 20160722
  Receipt Date: 20160722
  Transmission Date: 20161109
  Serious: No
  Sender: FDA-Public Use
  Company Number: US-TAKEDA-2016TUS012506

PATIENT
  Sex: Female

DRUGS (3)
  1. BRINTELLIX [Suspect]
     Active Substance: VORTIOXETINE HYDROBROMIDE
     Dosage: 10 MG, UNK
     Route: 048
     Dates: start: 201605
  2. BRINTELLIX [Suspect]
     Active Substance: VORTIOXETINE HYDROBROMIDE
     Indication: PRODUCT USED FOR UNKNOWN INDICATION
     Dosage: 5 MG, UNK
     Route: 048
     Dates: start: 201605, end: 201605
  3. BRINTELLIX [Suspect]
     Active Substance: VORTIOXETINE HYDROBROMIDE
     Dosage: 10 MG, UNK
     Route: 048
     Dates: end: 20160628

REACTIONS (2)
  - Hyperhidrosis [Recovered/Resolved]
  - Wrong technique in product usage process [Recovered/Resolved]
